FAERS Safety Report 6770283-1 (Version None)
Quarter: 2010Q2

REPORT INFORMATION
  Report Type: 
  Country: None (occurrence: None)
  Receive Date: 20100615
  Receipt Date: 20100610
  Transmission Date: 20101027
  Serious: Yes (Hospitalization)
  Sender: FDA-Public Use
  Company Number: US-BRISTOL-MYERS SQUIBB COMPANY-15144413

PATIENT
  Age: 40 Year
  Sex: Male
  Weight: 57 kg

DRUGS (4)
  1. DASATINIB [Suspect]
     Indication: NON-SMALL CELL LUNG CANCER
     Route: 048
     Dates: start: 20100409, end: 20100519
  2. TAXOL [Suspect]
     Indication: NON-SMALL CELL LUNG CANCER
     Route: 042
     Dates: start: 20100409, end: 20100514
  3. CARBOPLATIN [Suspect]
     Indication: NON-SMALL CELL LUNG CANCER
     Dosage: 1 DF= AUC 2
     Route: 042
     Dates: start: 20100409, end: 20100514
  4. RADIATION THERAPY [Suspect]
     Indication: NON-SMALL CELL LUNG CANCER
     Dosage: 1 DF= 45 GY
     Dates: start: 20100409, end: 20100519

REACTIONS (2)
  - OESOPHAGEAL PAIN [None]
  - RADIATION OESOPHAGITIS [None]
